FAERS Safety Report 6593244-4 (Version None)
Quarter: 2010Q1

REPORT INFORMATION
  Report Type: 
  Country: None (occurrence: None)
  Receive Date: 20100212
  Receipt Date: 20100201
  Transmission Date: 20100710
  Serious: No
  Sender: FDA-Public Use
  Company Number: 008779

PATIENT
  Age: 51 Year
  Sex: Male

DRUGS (4)
  1. BUSULFEX [Suspect]
     Indication: STEM CELL TRANSPLANT
     Dosage: 3.2 MG/KG, QD, INTRAVENOUS
     Route: 042
  2. FLUDARABINE PHOSPHATE [Suspect]
     Dosage: 30 MG/M2, DAILY DOSE
  3. CAMPATH [Concomitant]
  4. CYCLOSPORINE [Concomitant]

REACTIONS (16)
  - CACHEXIA [None]
  - CONJUNCTIVITIS [None]
  - CREPITATIONS [None]
  - ERYTHEMA [None]
  - GRAFT VERSUS HOST DISEASE [None]
  - HAEMOGLOBIN DECREASED [None]
  - LUNG CONSOLIDATION [None]
  - LUNG NEOPLASM [None]
  - OROPHARYNGEAL PAIN [None]
  - PEMPHIGOID [None]
  - PRODUCTIVE COUGH [None]
  - PYREXIA [None]
  - RASH VESICULAR [None]
  - SKIN LESION [None]
  - SPUTUM PURULENT [None]
  - WEIGHT DECREASED [None]
